FAERS Safety Report 5211010-9 (Version None)
Quarter: 2007Q1

REPORT INFORMATION
  Report Type: 
  Country: None (occurrence: None)
  Receive Date: 20070117
  Receipt Date: 20070105
  Transmission Date: 20070707
  Serious: Yes (Hospitalization, Other)
  Sender: FDA-Public Use
  Company Number: US-PFIZER INC-2007002377

PATIENT
  Sex: Female
  Weight: 90.7 kg

DRUGS (12)
  1. CHANTIX [Suspect]
     Indication: SMOKING CESSATION THERAPY
  2. STRATTERA [Concomitant]
  3. DILTIAZEM HCL [Concomitant]
  4. LAMICTAL [Concomitant]
  5. SEROQUEL [Concomitant]
  6. PLAVIX [Concomitant]
  7. COREG [Concomitant]
  8. GEODON [Concomitant]
  9. LEVOXYL [Concomitant]
  10. PREVACID [Concomitant]
  11. CATAPRES [Concomitant]
  12. ATIVAN [Concomitant]

REACTIONS (11)
  - ABDOMINAL PAIN UPPER [None]
  - ANION GAP DECREASED [None]
  - BLOOD ALKALINE PHOSPHATASE INCREASED [None]
  - BLOOD COUNT ABNORMAL [None]
  - BLOOD UREA DECREASED [None]
  - DEHYDRATION [None]
  - DRUG INEFFECTIVE [None]
  - HAEMATOCRIT INCREASED [None]
  - HAEMOGLOBIN INCREASED [None]
  - NAUSEA [None]
  - PANCREATIC DISORDER [None]
